FAERS Safety Report 12472460 (Version 2)
Quarter: 2016Q2

REPORT INFORMATION
  Report Type: Spontaneous
  Country: JP (occurrence: JP)
  Receive Date: 20160616
  Receipt Date: 20160622
  Transmission Date: 20160815
  Serious: Yes (Hospitalization, Other)
  Sender: FDA-Public Use
  Company Number: JP-BRISTOL-MYERS SQUIBB COMPANY-BMS-2016-046871

PATIENT
  Age: 88 Year
  Sex: Male

DRUGS (1)
  1. ELIQUIS [Suspect]
     Active Substance: APIXABAN
     Indication: CEREBROVASCULAR ACCIDENT PROPHYLAXIS
     Route: 048

REACTIONS (6)
  - Dementia [Unknown]
  - Haemorrhagic diathesis [Unknown]
  - Oedema [Unknown]
  - Anaemia [Unknown]
  - Transfusion [Unknown]
  - Occult blood [Unknown]

NARRATIVE: CASE EVENT DATE: 20160608
